FAERS Safety Report 5469537-0 (Version None)
Quarter: 2007Q3

REPORT INFORMATION
  Report Type: 
  Country: None (occurrence: None)
  Receive Date: 20070927
  Receipt Date: 20070918
  Transmission Date: 20080115
  Serious: Yes (Disabling, Other)
  Sender: FDA-Public Use
  Company Number: B0488415A

PATIENT
  Age: 56 Year
  Sex: Male

DRUGS (6)
  1. SALMETEROL [Suspect]
     Dosage: 50UG TWICE PER DAY
     Route: 055
     Dates: start: 20070416
  2. BECLOMETHASONE DIPROPIONATE [Concomitant]
     Indication: DRUG USE FOR UNKNOWN INDICATION
     Dosage: 400UG TWICE PER DAY
     Route: 055
     Dates: start: 20070301
  3. DOXYCYCLINE [Concomitant]
     Indication: DRUG USE FOR UNKNOWN INDICATION
     Dosage: 100MG PER DAY
     Route: 048
     Dates: start: 20070101, end: 20070101
  4. MONTELUKAST SODIUM [Concomitant]
     Dosage: 10MG PER DAY
     Route: 048
     Dates: start: 20070416, end: 20070425
  5. PREDNISOLONE [Concomitant]
     Indication: DRUG USE FOR UNKNOWN INDICATION
     Dosage: 5MG EIGHT TIMES PER DAY
     Route: 048
     Dates: start: 20070101, end: 20070101
  6. VENTOLIN [Concomitant]
     Indication: DRUG USE FOR UNKNOWN INDICATION
     Dosage: 200UG AS REQUIRED
     Route: 055
     Dates: start: 20070101

REACTIONS (2)
  - BLOOD CREATINE PHOSPHOKINASE INCREASED [None]
  - MYALGIA [None]
